FAERS Safety Report 12907845 (Version 1)
Quarter: 2016Q4

REPORT INFORMATION
  Report Type: Spontaneous
  Country: US (occurrence: US)
  Receive Date: 20161103
  Receipt Date: 20161103
  Transmission Date: 20170207
  Serious: No
  Sender: FDA-Public Use
  Company Number: US-PFIZER INC-2016510571

PATIENT

DRUGS (1)
  1. LYRICA [Suspect]
     Active Substance: PREGABALIN
     Dosage: UNK

REACTIONS (8)
  - Pain [Unknown]
  - Tremor [Unknown]
  - Confusional state [Unknown]
  - Asthenia [Unknown]
  - Therapeutic response unexpected [Unknown]
  - Thinking abnormal [Unknown]
  - Gait disturbance [Unknown]
  - Memory impairment [Unknown]
